FAERS Safety Report 16194896 (Version 2)
Quarter: 2019Q2

REPORT INFORMATION
  Report Type: Spontaneous
  Country: DE (occurrence: DE)
  Receive Date: 20190415
  Receipt Date: 20190424
  Transmission Date: 20190711
  Serious: Yes (Hospitalization, Disabling, Other)
  Sender: FDA-Public Use
  Company Number: DE-DENTSPLY-2019SCDP000230

PATIENT
  Age: 39 Year
  Sex: Female

DRUGS (4)
  1. DEXAMETHASONE. [Suspect]
     Active Substance: DEXAMETHASONE
     Indication: MYOSCLEROSIS
     Dosage: INJECTION
  2. TRAMADOL. [Suspect]
     Active Substance: TRAMADOL
     Indication: MYOSCLEROSIS
     Dosage: INJECTION
  3. METAMIZOLE SODIUM [Suspect]
     Active Substance: METAMIZOLE SODIUM
     Indication: MYOSCLEROSIS
     Dosage: INJECTION
  4. MEPIVACAINE HCL [Suspect]
     Active Substance: MEPIVACAINE\MEPIVACAINE HYDROCHLORIDE
     Indication: MYOSCLEROSIS
     Dosage: INJECTION

REACTIONS (11)
  - Wrong technique in product usage process [None]
  - Quadriparesis [Unknown]
  - Hyperaesthesia [None]
  - Sensory disturbance [Unknown]
  - Quadriplegia [Recovered/Resolved]
  - VIIIth nerve injury [Recovered/Resolved]
  - Deafness neurosensory [None]
  - Loss of consciousness [Recovered/Resolved]
  - Ataxia [Recovered/Resolved]
  - Deafness bilateral [None]
  - Tinnitus [None]
